FAERS Safety Report 8770790 (Version 1)
Quarter: 2012Q4

REPORT INFORMATION
  Report Type: 
  Country: FR (occurrence: FR)
  Receive Date: 20120906
  Receipt Date: 20120906
  Transmission Date: 20130627
  Serious: Yes (Death)
  Sender: FDA-Public Use
  Company Number: FR-MYLANLABS-2012S1017439

PATIENT
  Age: 67 Year
  Sex: Male

DRUGS (13)
  1. ETOPOSIDE [Suspect]
     Indication: B-CELL LYMPHOMA
     Route: 042
     Dates: start: 20120222, end: 20120222
  2. ONDANSETRON [Suspect]
     Indication: PREMEDICATION
     Route: 042
     Dates: start: 20120221, end: 20120222
  3. METHYLPREDNISOLONE [Suspect]
     Indication: PREMEDICATION
     Route: 042
     Dates: start: 20120221, end: 20120222
  4. ARACYTINE [Suspect]
     Dates: start: 20120222, end: 20120222
  5. EMEND /01627301/ [Suspect]
     Dates: start: 20120221, end: 20120222
  6. BICNU [Concomitant]
     Dates: start: 20120221, end: 20120221
  7. VALIUM [Concomitant]
  8. AMLODIPINE [Concomitant]
  9. DAFALGAN [Concomitant]
  10. TOPALGIC [Concomitant]
  11. DIAMICRON [Concomitant]
  12. INEXIUM [Concomitant]
  13. PRAVASTATINE [Concomitant]

REACTIONS (2)
  - Cardio-respiratory arrest [Fatal]
  - Electrocardiogram QT prolonged [Fatal]
